FAERS Safety Report 8169039-7 (Version None)
Quarter: 2012Q1

REPORT INFORMATION
  Report Type: 
  Country: None (occurrence: None)
  Receive Date: 20120227
  Receipt Date: 20120223
  Transmission Date: 20120608
  Serious: No
  Sender: FDA-Public Use
  Company Number: US-PFIZER INC-2012048707

PATIENT
  Sex: Female
  Weight: 65.76 kg

DRUGS (3)
  1. VALIUM [Concomitant]
     Dosage: UNK
  2. TOPAMAX [Concomitant]
     Dosage: UNK
  3. GEODON [Suspect]
     Indication: AFFECTIVE DISORDER
     Dosage: UNK
     Route: 048
     Dates: start: 20111201, end: 20120221

REACTIONS (7)
  - CHILLS [None]
  - HYPERHIDROSIS [None]
  - ELECTROCARDIOGRAM ABNORMAL [None]
  - ANXIETY [None]
  - TREMOR [None]
  - WITHDRAWAL SYNDROME [None]
  - PANIC ATTACK [None]
